FAERS Safety Report 8593340-6 (Version None)
Quarter: 2012Q3

REPORT INFORMATION
  Report Type: 
  Country: None (occurrence: None)
  Receive Date: 20120814
  Receipt Date: 20120807
  Transmission Date: 20120928
  Serious: Yes (Hospitalization, Other)
  Sender: FDA-Public Use
  Company Number: US-JNJFOC-20120405805

PATIENT
  Sex: Female
  Weight: 136.08 kg

DRUGS (5)
  1. DURAGESIC-100 [Suspect]
     Indication: NECK PAIN
     Route: 062
     Dates: start: 20120401
  2. ZYRTEC [Concomitant]
     Indication: MULTIPLE ALLERGIES
     Route: 048
     Dates: start: 19970101
  3. PERCOCET [Concomitant]
     Indication: NECK PAIN
     Route: 048
     Dates: start: 20110101
  4. DURAGESIC-100 [Suspect]
     Indication: BACK PAIN
     Route: 062
     Dates: start: 20120401
  5. PAXIL [Concomitant]
     Indication: ANTIDEPRESSANT THERAPY
     Route: 048
     Dates: start: 20110101

REACTIONS (6)
  - MUSCLE SPASMS [None]
  - DRUG INEFFECTIVE [None]
  - SLEEP APNOEA SYNDROME [None]
  - DERMATITIS CONTACT [None]
  - PRODUCT QUALITY ISSUE [None]
  - WRONG TECHNIQUE IN DRUG USAGE PROCESS [None]
